FAERS Safety Report 15913990 (Version 1)
Quarter: 2019Q1

REPORT INFORMATION
  Report Type: Spontaneous
  Country: US (occurrence: US)
  Receive Date: 20190204
  Receipt Date: 20190204
  Transmission Date: 20190417
  Serious: Yes (Hospitalization)
  Sender: FDA-Public Use
  Company Number: None

PATIENT
  Age: 40 Year
  Sex: Female
  Weight: 54 kg

DRUGS (6)
  1. PROGESTERONE. [Concomitant]
     Active Substance: PROGESTERONE
  2. COQ10 [Concomitant]
     Active Substance: UBIDECARENONE
  3. ELEVIL [Concomitant]
  4. MICROGESTIN [Concomitant]
     Active Substance: ETHINYL ESTRADIOL\NORETHINDRONE ACETATE
  5. AIMOVIG [Suspect]
     Active Substance: ERENUMAB-AOOE
     Indication: MIGRAINE
     Dosage: ?          QUANTITY:1 INJECTION(S);OTHER FREQUENCY:30 DAYS;?
     Route: 058
     Dates: start: 20181026, end: 20181126
  6. MAGNESIUM OXIDE. [Concomitant]
     Active Substance: MAGNESIUM OXIDE

REACTIONS (1)
  - Migraine [None]

NARRATIVE: CASE EVENT DATE: 20181026
